FAERS Safety Report 9882466 (Version 2)
Quarter: 2014Q1

REPORT INFORMATION
  Report Type: Spontaneous
  Country: ZA (occurrence: US)
  Receive Date: 20140207
  Receipt Date: 20140207
  Transmission Date: 20141002
  Serious: Yes (Death)
  Sender: FDA-Public Use
  Company Number: US-PFIZER INC-2014029680

PATIENT
  Sex: Male
  Weight: .6 kg

DRUGS (8)
  1. PROPANOLOL HCL [Suspect]
     Indication: HYPERTENSION
     Route: 064
  2. NIFEDIPINE [Suspect]
     Indication: HYPERTENSION
     Route: 064
  3. ENALAPRIL [Suspect]
     Indication: HYPERTENSION
     Dosage: UNK
     Route: 064
  4. HYDRALAZINE HYDROCHLORIDE [Suspect]
     Indication: HYPERTENSION
     Dosage: UNK
     Route: 064
  5. CLONIDINE HYDROCHLORIDE [Suspect]
     Indication: HYPERTENSION
     Dosage: UNK
     Route: 064
  6. NITROPRUSSIDE [Suspect]
     Indication: HYPERTENSION
     Dosage: UNK
     Route: 064
  7. PREDNISONE [Concomitant]
     Indication: GRAND MAL CONVULSION
     Route: 064
  8. HYDANTOIN [Concomitant]
     Indication: GRAND MAL CONVULSION
     Route: 064

REACTIONS (3)
  - Maternal exposure during pregnancy [Fatal]
  - Renal failure neonatal [Fatal]
  - Neonatal hypotension [Fatal]
